FAERS Safety Report 5113538-9 (Version None)
Quarter: 2006Q3

REPORT INFORMATION
  Report Type: 
  Country: None (occurrence: None)
  Receive Date: 20060920
  Receipt Date: 20060910
  Transmission Date: 20061208
  Serious: Yes (Other)
  Sender: FDA-Public Use
  Company Number: 2006BI012946

PATIENT
  Age: 62 Year
  Sex: Male

DRUGS (2)
  1. ZEVALIN [Suspect]
     Indication: DRUG USE FOR UNKNOWN INDICATION
     Dosage: 10 MBQ;1X;IV
     Route: 042
     Dates: start: 20060401, end: 20060401
  2. ZEVALIN [Suspect]
     Indication: DRUG USE FOR UNKNOWN INDICATION
     Dosage: 10 MBQ;1X;IV
     Route: 042
     Dates: start: 20060401, end: 20060401

REACTIONS (1)
  - APLASIA [None]
